FAERS Safety Report 6284821-9 (Version None)
Quarter: 2009Q3

REPORT INFORMATION
  Report Type: 
  Country: None (occurrence: None)
  Receive Date: 20090727
  Receipt Date: 20090720
  Transmission Date: 20100115
  Serious: Yes (Other)
  Sender: FDA-Public Use
  Company Number: US-AVENTIS-200914270US

PATIENT
  Sex: Male
  Weight: 83.9 kg

DRUGS (1)
  1. LANTUS [Suspect]
     Route: 058
     Dates: start: 20050101

REACTIONS (1)
  - BLINDNESS [None]
